FAERS Safety Report 9097023 (Version 1)
Quarter: 2013Q1

REPORT INFORMATION
  Report Type: Spontaneous
  Country: DE (occurrence: None)
  Receive Date: 20130123
  Receipt Date: 20130123
  Transmission Date: 20140127
  Serious: Yes (Other)
  Sender: FDA-Public Use
  Company Number: GER/GER/13/0027410

PATIENT
  Age: 56 Year
  Sex: Male

DRUGS (2)
  1. OLANZAPIN BETA 5 MG FILMTABLETTEN (OLANZAPINE_ [Suspect]
     Indication: PRODUCT USED FOR UNKNOWN INDICATION
     Route: 048
  2. CARBAMAZEPINE (CARBAZEPINE) [Concomitant]

REACTIONS (4)
  - Dizziness [None]
  - Headache [None]
  - Dyspnoea [None]
  - Somnolence [None]
